FAERS Safety Report 6599671-3 (Version None)
Quarter: 2010Q1

REPORT INFORMATION
  Report Type: 
  Country: None (occurrence: None)
  Receive Date: 20100224
  Receipt Date: 20100210
  Transmission Date: 20100710
  Serious: Yes (Other)
  Sender: FDA-Public Use
  Company Number: US-ROCHE-686822

PATIENT
  Age: 47 Year
  Sex: Female

DRUGS (6)
  1. XELODA [Suspect]
     Route: 065
  2. HERCEPTIN [Suspect]
     Route: 065
  3. AVASTIN [Suspect]
     Route: 065
  4. NAVELBINE [Concomitant]
  5. GEMZAR [Concomitant]
  6. ABRAXANE [Concomitant]

REACTIONS (3)
  - BREAST CANCER METASTATIC [None]
  - DISEASE PROGRESSION [None]
  - DRUG INEFFECTIVE [None]
